FAERS Safety Report 9033536 (Version 1)
Quarter: 2013Q1

REPORT INFORMATION
  Report Type: Other
  Country: CA (occurrence: CA)
  Receive Date: 20130128
  Receipt Date: 20130128
  Transmission Date: 20140127
  Serious: Yes (Hospitalization, Other)
  Sender: FDA-Public Use
  Company Number: CA-PURDUE-CAN-2013-0003687

PATIENT
  Sex: Female
  Weight: 63.5 kg

DRUGS (3)
  1. OXYNEO 40 MG [Suspect]
     Indication: PAIN
     Dosage: 1 TABLET, 5 TIMES PER DAY
  2. OXYCONTIN TABLETS [Suspect]
     Indication: PAIN
     Dosage: UNK
  3. COUMADIN                           /00014802/ [Concomitant]
     Indication: ANTICOAGULANT THERAPY

REACTIONS (2)
  - Drug ineffective [Not Recovered/Not Resolved]
  - Weight decreased [Not Recovered/Not Resolved]
